FAERS Safety Report 4378546-4 (Version None)
Quarter: 2004Q2

REPORT INFORMATION
  Report Type: 
  Country: None (occurrence: None)
  Receive Date: 20040616
  Receipt Date: 20040519
  Transmission Date: 20050107
  Serious: Yes (Disabling)
  Sender: FDA-Public Use
  Company Number: JP-GLAXOSMITHKLINE-B0333442A

PATIENT
  Age: 2 Year
  Sex: Male
  Weight: 11 kg

DRUGS (12)
  1. ALKERAN [Suspect]
     Indication: STEM CELL TRANSPLANT
     Route: 042
     Dates: start: 20040202, end: 20040203
  2. ETOPOSIDE [Suspect]
     Indication: STEM CELL TRANSPLANT
     Route: 042
     Dates: start: 20040128, end: 20040201
  3. NEUTROGIN [Concomitant]
     Dates: start: 20040206, end: 20040319
  4. PENTCILLIN [Concomitant]
     Dates: start: 20040127, end: 20040222
  5. DIFLUCAN [Concomitant]
     Route: 042
     Dates: start: 20040127, end: 20040222
  6. ZOVIRAX [Concomitant]
     Route: 042
     Dates: start: 20040206, end: 20040312
  7. FUNGIZONE [Concomitant]
     Route: 048
     Dates: start: 20040128, end: 20040401
  8. VANCOMYCIN HYDROCHLORIDE [Concomitant]
     Route: 048
     Dates: start: 20040128, end: 20040221
  9. POLYMYXIN B SULFATE [Concomitant]
     Route: 048
     Dates: start: 20040222, end: 20040401
  10. GAMIMUNE N 5% [Concomitant]
     Route: 042
     Dates: start: 20040208, end: 20040410
  11. BAKTAR [Concomitant]
     Route: 048
     Dates: start: 20040324
  12. ANTITHROMBIN [Concomitant]

REACTIONS (6)
  - BLOOD PRESSURE DECREASED [None]
  - CONVULSION [None]
  - CYANOSIS [None]
  - HYPOCALCAEMIA [None]
  - RENAL IMPAIRMENT [None]
  - STARING [None]
